FAERS Safety Report 19666524 (Version 1)
Quarter: 2021Q3

REPORT INFORMATION
  Report Type: Spontaneous
  Country: GB (occurrence: GB)
  Receive Date: 20210806
  Receipt Date: 20210806
  Transmission Date: 20211014
  Serious: Yes (Disabling)
  Sender: FDA-Public Use
  Company Number: NVSC2021GB173180

PATIENT
  Age: 49 Year
  Sex: Male
  Weight: 96 kg

DRUGS (4)
  1. FINASTERIDE. [Suspect]
     Active Substance: FINASTERIDE
     Indication: URINARY HESITATION
     Dosage: 5 MG, QD
     Route: 065
     Dates: start: 20041201, end: 20080616
  2. TAMSULOSIN [Suspect]
     Active Substance: TAMSULOSIN
     Indication: URINARY HESITATION
  3. TAMSULOSIN [Suspect]
     Active Substance: TAMSULOSIN
     Indication: NOCTURIA
     Dosage: 400 UG, QD
     Route: 065
     Dates: start: 20041201, end: 20080616
  4. FINASTERIDE. [Suspect]
     Active Substance: FINASTERIDE
     Indication: NOCTURIA

REACTIONS (4)
  - Haematospermia [Recovered/Resolved]
  - Erectile dysfunction [Not Recovered/Not Resolved]
  - Prostate cancer [Recovered/Resolved with Sequelae]
  - Sexual dysfunction [Not Recovered/Not Resolved]

NARRATIVE: CASE EVENT DATE: 20050401
